FAERS Safety Report 4497633-3 (Version None)
Quarter: 2004Q4

REPORT INFORMATION
  Report Type: 
  Country: None (occurrence: None)
  Receive Date: 20041110
  Receipt Date: 20031104
  Transmission Date: 20050328
  Serious: Yes (Death, Hospitalization)
  Sender: FDA-Public Use
  Company Number: GB-BRISTOL-MYERS SQUIBB COMPANY-12427225

PATIENT
  Age: 58 Year
  Sex: Female

DRUGS (4)
  1. CISPLATIN [Suspect]
     Indication: BREAST CANCER METASTATIC
     Route: 042
     Dates: start: 20020416, end: 20020416
  2. VINORELBINE [Suspect]
     Indication: BREAST CANCER METASTATIC
     Route: 042
     Dates: start: 20020423, end: 20020423
  3. ARIMIDEX [Concomitant]
     Indication: BREAST CANCER METASTATIC
     Route: 048
     Dates: start: 20020403
  4. DEXAMETHASONE [Concomitant]
     Indication: BREAST CANCER METASTATIC
     Route: 042
     Dates: start: 20020425

REACTIONS (4)
  - CEREBRAL HAEMORRHAGE [None]
  - CONFUSIONAL STATE [None]
  - NEUTROPENIC SEPSIS [None]
  - THROMBOCYTOPENIA [None]
